FAERS Safety Report 15415046 (Version 4)
Quarter: 2022Q4

REPORT INFORMATION
  Report Type: Spontaneous
  Country: JP (occurrence: JP)
  Receive Date: 20180921
  Receipt Date: 20221223
  Transmission Date: 20230113
  Serious: Yes (Death, Other)
  Sender: FDA-Public Use
  Company Number: JP-MSD-M2018-29665

PATIENT
  Age: 79 Year
  Sex: Male
  Weight: 46 kg

DRUGS (3)
  1. KEYTRUDA [Suspect]
     Active Substance: PEMBROLIZUMAB
     Indication: Bladder cancer stage IV
     Dosage: 200 MG, Q3W
     Route: 041
     Dates: start: 20180904, end: 20180904
  2. CELECOXIB [Concomitant]
     Active Substance: CELECOXIB
     Indication: Pain
     Dosage: 100 MG, BID
     Route: 048
     Dates: start: 20180812, end: 20180909
  3. VOLTAREN [Concomitant]
     Active Substance: DICLOFENAC SODIUM
     Indication: Pain
     Dosage: 50 MG, AS-NEEDED BASIS
     Route: 054

REACTIONS (4)
  - Death [Fatal]
  - Hypoglycaemia [Recovered/Resolved]
  - Anaemia [Unknown]
  - Hypoalbuminaemia [Unknown]

NARRATIVE: CASE EVENT DATE: 20180906
